FAERS Safety Report 23367575 (Version 2)
Quarter: 2024Q1

REPORT INFORMATION
  Report Type: Spontaneous
  Country: US (occurrence: US)
  Receive Date: 20240104
  Receipt Date: 20240215
  Transmission Date: 20240410
  Serious: No
  Sender: FDA-Public Use
  Company Number: US-PFIZER INC-PV202400001110

PATIENT
  Age: 63 Year
  Sex: Female
  Weight: 61.23 kg

DRUGS (1)
  1. NURTEC ODT [Suspect]
     Active Substance: RIMEGEPANT SULFATE
     Dosage: PLACE 1 TABLET ON OR UNDER THE TONGUE EVERY OTHER DAY FOR 30 DAYS
     Route: 048

REACTIONS (6)
  - Headache [Unknown]
  - Dizziness [Unknown]
  - Upper respiratory tract infection [Unknown]
  - Fatigue [Unknown]
  - Anxiety [Unknown]
  - Stress at work [Unknown]

NARRATIVE: CASE EVENT DATE: 20231214
